FAERS Safety Report 4835598-2 (Version None)
Quarter: 2005Q4

REPORT INFORMATION
  Report Type: 
  Country: None (occurrence: None)
  Receive Date: 20051121
  Receipt Date: 20051110
  Transmission Date: 20060501
  Serious: Yes (Hospitalization)
  Sender: FDA-Public Use
  Company Number: 2005-11-0607

PATIENT
  Age: 8 Year
  Sex: Female
  Weight: 43.0917 kg

DRUGS (1)
  1. CLARINEX [Suspect]
     Indication: ASTHMA
     Dosage: 5MG ORAL
     Route: 048
     Dates: start: 20051020

REACTIONS (2)
  - PALPITATIONS [None]
  - SUPRAVENTRICULAR TACHYCARDIA [None]
